FAERS Safety Report 8404436-3 (Version None)
Quarter: 2012Q2

REPORT INFORMATION
  Report Type: 
  Country: None (occurrence: None)
  Receive Date: 20120601
  Receipt Date: 20111117
  Transmission Date: 20120825
  Serious: No
  Sender: FDA-Public Use
  Company Number: US-NOVEN-11US003653

PATIENT
  Sex: Male
  Weight: 31.746 kg

DRUGS (5)
  1. CAFFEINE [Concomitant]
     Dosage: UNK
  2. FISH OIL [Concomitant]
  3. MELATONIN [Concomitant]
     Dosage: 1 MG, EVENING
     Route: 048
  4. DAYTRANA [Suspect]
     Indication: ATTENTION DEFICIT/HYPERACTIVITY DISORDER
     Dosage: 10 MG, 1 PATCH DAILY FOR 9 HOURS
     Route: 062
     Dates: start: 20090101
  5. MULTI-VITAMINS [Concomitant]

REACTIONS (5)
  - AGGRESSION [None]
  - WRONG TECHNIQUE IN DRUG USAGE PROCESS [None]
  - INCORRECT DRUG ADMINISTRATION DURATION [None]
  - DRUG INEFFECTIVE [None]
  - PRODUCT QUALITY ISSUE [None]
